FAERS Safety Report 7745775-9 (Version None)
Quarter: 2011Q3

REPORT INFORMATION
  Report Type: 
  Country: None (occurrence: None)
  Receive Date: 20110913
  Receipt Date: 20110902
  Transmission Date: 20111222
  Serious: Yes (Life-Threatening, Hospitalization, Other)
  Sender: FDA-Public Use
  Company Number: RU-BAYER-2011-061930

PATIENT
  Age: 26 Year
  Sex: Female

DRUGS (1)
  1. MIRENA [Suspect]
     Indication: CONTRACEPTION
     Dosage: UNK
     Route: 015
     Dates: start: 20100501, end: 20110715

REACTIONS (3)
  - OVARIAN RUPTURE [None]
  - ABDOMINAL PAIN [None]
  - OVARIAN HAEMORRHAGE [None]
